FAERS Safety Report 4936820-4 (Version None)
Quarter: 2006Q1

REPORT INFORMATION
  Report Type: 
  Country: None (occurrence: None)
  Receive Date: 20060307
  Receipt Date: 20050512
  Transmission Date: 20060701
  Serious: Yes (Hospitalization)
  Sender: FDA-Public Use
  Company Number: US-MERCK-0505USA01672

PATIENT
  Age: 46 Year
  Sex: Female
  Weight: 59 kg

DRUGS (2)
  1. VIOXX [Suspect]
     Indication: ARTHRALGIA
     Route: 048
  2. EXTRA STRENGTH TYLENOL [Concomitant]
     Route: 065

REACTIONS (31)
  - ABDOMINAL PAIN [None]
  - AMNESIA [None]
  - ANXIETY [None]
  - ANXIETY DISORDER [None]
  - ARTHRALGIA [None]
  - CARDIAC FAILURE CONGESTIVE [None]
  - CARPAL TUNNEL SYNDROME [None]
  - CELLULITIS [None]
  - CEREBRAL THROMBOSIS [None]
  - CHEST PAIN [None]
  - CONFUSIONAL STATE [None]
  - DEPRESSION [None]
  - DYSPEPSIA [None]
  - DYSPHAGIA [None]
  - FATIGUE [None]
  - HEART RATE INCREASED [None]
  - HEPATIC STEATOSIS [None]
  - HIATUS HERNIA [None]
  - HYPERLIPIDAEMIA [None]
  - HYPERTENSION [None]
  - HYPOAESTHESIA [None]
  - LACERATION [None]
  - LIMB INJURY [None]
  - NECK PAIN [None]
  - NON-CARDIAC CHEST PAIN [None]
  - OESOPHAGEAL STENOSIS [None]
  - PANCREATITIS ACUTE [None]
  - REFLUX OESOPHAGITIS [None]
  - SINUSITIS [None]
  - THYROID CYST [None]
  - VISUAL DISTURBANCE [None]
